FAERS Safety Report 4777119-9 (Version None)
Quarter: 2005Q3

REPORT INFORMATION
  Report Type: 
  Country: None (occurrence: None)
  Receive Date: 20050923
  Receipt Date: 20050915
  Transmission Date: 20060218
  Serious: Yes (Other)
  Sender: FDA-Public Use
  Company Number: 200518177GDDC

PATIENT
  Age: 55 Year
  Sex: Female
  Weight: 55 kg

DRUGS (2)
  1. RIFATER [Suspect]
     Indication: RENAL TUBERCULOSIS
     Dosage: DOSE: 5  TAB
     Route: 048
     Dates: start: 20050804
  2. PYRIDOXINE HCL [Concomitant]
     Indication: RENAL TUBERCULOSIS
     Route: 048
     Dates: start: 20050804

REACTIONS (4)
  - CHEILITIS [None]
  - HOT FLUSH [None]
  - RASH [None]
  - SKIN DISORDER [None]
